FAERS Safety Report 7622522-2 (Version None)
Quarter: 2011Q3

REPORT INFORMATION
  Report Type: 
  Country: None (occurrence: None)
  Receive Date: 20110716
  Receipt Date: 20110716
  Transmission Date: 20111222
  Serious: No
  Sender: FDA-Public Use
  Company Number: None

PATIENT
  Age: 61 Year
  Sex: Male
  Weight: 89.27 kg

DRUGS (2)
  1. PRADAXA [Suspect]
     Indication: DEEP VEIN THROMBOSIS
     Dates: start: 20110705, end: 20110716
  2. PRADAXA [Suspect]
     Indication: PULMONARY EMBOLISM
     Dates: start: 20110705, end: 20110716

REACTIONS (1)
  - CONJUNCTIVAL HAEMORRHAGE [None]
